FAERS Safety Report 15752584 (Version 1)
Quarter: 2018Q4

REPORT INFORMATION
  Report Type: Spontaneous
  Country: JP (occurrence: JP)
  Receive Date: 20181221
  Receipt Date: 20181221
  Transmission Date: 20190205
  Serious: Yes (Other)
  Sender: FDA-Public Use
  Company Number: JP-ALSI-201800678

PATIENT
  Age: 72 Year
  Sex: Male

DRUGS (1)
  1. OXYGEN. [Suspect]
     Active Substance: OXYGEN
     Route: 055

REACTIONS (4)
  - Off label use [Unknown]
  - Barotitis media [Unknown]
  - Bronchopleural fistula [Unknown]
  - Condition aggravated [Unknown]
